FAERS Safety Report 6388393-X (Version None)
Quarter: 2009Q4

REPORT INFORMATION
  Report Type: 
  Country: None (occurrence: None)
  Receive Date: 20091005
  Receipt Date: 20090930
  Transmission Date: 20100525
  Serious: Yes (Hospitalization)
  Sender: FDA-Public Use
  Company Number: FR-WYE-G04539409

PATIENT
  Sex: Male

DRUGS (4)
  1. TORISEL [Suspect]
     Indication: RENAL CANCER METASTATIC
     Route: 042
     Dates: start: 20090417, end: 20090801
  2. TOPALGIC [Concomitant]
     Indication: PAIN
     Dosage: TOPALGIC LP 150 MG 2 TIMES DAILY AND TOPALGIC 50 MG 1 TIME DAILY
     Route: 048
  3. ZOLOFT [Concomitant]
     Route: 048
  4. PREVISCAN [Suspect]
     Indication: THROMBOSIS PROPHYLAXIS
     Dosage: 20 MG STRENGTH; DOSE UNKNOWN
     Route: 048
     Dates: start: 20060101, end: 20090804

REACTIONS (2)
  - GASTROINTESTINAL ANGIODYSPLASIA HAEMORRHAGIC [None]
  - INTERNATIONAL NORMALISED RATIO INCREASED [None]
